FAERS Safety Report 17272787 (Version 1)
Quarter: 2020Q1

REPORT INFORMATION
  Report Type: Spontaneous
  Country: FR (occurrence: FR)
  Receive Date: 20200115
  Receipt Date: 20200115
  Transmission Date: 20200409
  Serious: Yes (Other)
  Sender: FDA-Public Use
  Company Number: FR-ASTRAZENECA-2020SE04113

PATIENT
  Sex: Male

DRUGS (8)
  1. BENRALIZUMAB. [Suspect]
     Active Substance: BENRALIZUMAB
     Indication: NASAL POLYPS
     Route: 058
     Dates: start: 20190801
  2. BENRALIZUMAB. [Suspect]
     Active Substance: BENRALIZUMAB
     Indication: HYPERSENSITIVITY VASCULITIS
     Route: 058
     Dates: start: 20190801
  3. BENRALIZUMAB. [Suspect]
     Active Substance: BENRALIZUMAB
     Indication: HYPERSENSITIVITY VASCULITIS
     Dosage: EVERY 6 WEEKS
     Route: 058
  4. BENRALIZUMAB. [Suspect]
     Active Substance: BENRALIZUMAB
     Indication: ASTHMA
     Route: 058
     Dates: start: 20190801
  5. CORTICOSTEROID [Concomitant]
     Active Substance: CORTICOSTEROID NOS
     Route: 048
  6. BENRALIZUMAB. [Suspect]
     Active Substance: BENRALIZUMAB
     Indication: ASTHMA
     Dosage: EVERY 6 WEEKS
     Route: 058
  7. BENRALIZUMAB. [Suspect]
     Active Substance: BENRALIZUMAB
     Indication: NASAL POLYPS
     Dosage: EVERY 6 WEEKS
     Route: 058
  8. BUDESONIDE/FORMOTEROL [Suspect]
     Active Substance: BUDESONIDE\FORMOTEROL
     Route: 055

REACTIONS (6)
  - Off label use [Unknown]
  - Eosinophil count increased [Unknown]
  - Pulmonary function test decreased [Unknown]
  - Drug ineffective [Unknown]
  - Asthma [Unknown]
  - Product use in unapproved indication [Unknown]

NARRATIVE: CASE EVENT DATE: 20190801
